FAERS Safety Report 8879120 (Version 1)
Quarter: 2012Q4

REPORT INFORMATION
  Report Type: Spontaneous
  Country: US (occurrence: None)
  Receive Date: 20121031
  Receipt Date: 20121031
  Transmission Date: 20130627
  Serious: No
  Sender: FDA-Public Use
  Company Number: None

PATIENT
  Age: 67 Year
  Sex: Female
  Weight: 88.45 kg

DRUGS (1)
  1. OMEPRAZOLE [Suspect]

REACTIONS (4)
  - Chest discomfort [None]
  - Chest pain [None]
  - Drug intolerance [None]
  - Dyspepsia [None]
